FAERS Safety Report 18198709 (Version 2)
Quarter: 2020Q3

REPORT INFORMATION
  Report Type: Report from Study
  Country: US (occurrence: US)
  Receive Date: 20200826
  Receipt Date: 20200909
  Transmission Date: 20201103
  Serious: Yes (Other)
  Sender: FDA-Public Use
  Company Number: US-TEVA-2020-US-1818229

PATIENT
  Age: 7 Year
  Sex: Male
  Weight: 30.2 kg

DRUGS (4)
  1. NORMAL SALINE [Concomitant]
     Active Substance: SODIUM CHLORIDE
     Indication: VEHICLE SOLUTION USE
     Dosage: 12MG DOSE OF METHOTREXATE WAS TAKEN FROM A 25MG/ML INJECTION OF SOLUTION THAT ALSO CONTAINED 0.9%...
     Route: 037
     Dates: start: 201901
  2. VINCRISTINE [Suspect]
     Active Substance: VINCRISTINE
     Indication: T-CELL TYPE ACUTE LEUKAEMIA
     Route: 065
  3. METHOTREXATE. [Suspect]
     Active Substance: METHOTREXATE
     Indication: T-CELL TYPE ACUTE LEUKAEMIA
     Dosage: 12MG DOSE OF METHOTREXATE WAS TAKEN FROM A 25MG/ML INJECTION OF SOLUTION THAT ALSO CONTAINED 0.9%...
     Route: 037
     Dates: start: 201901
  4. DEXAMETHASONE. [Suspect]
     Active Substance: DEXAMETHASONE
     Indication: T-CELL TYPE ACUTE LEUKAEMIA
     Route: 065

REACTIONS (6)
  - Neuropathy peripheral [Unknown]
  - Asthenia [Recovered/Resolved]
  - Product use complaint [Unknown]
  - Myopathy [Unknown]
  - Wrong product stored [Unknown]
  - Wrong product administered [Unknown]

NARRATIVE: CASE EVENT DATE: 201901
